FAERS Safety Report 9374958 (Version 1)
Quarter: 2013Q2

REPORT INFORMATION
  Report Type: Spontaneous
  Country: DE (occurrence: DE)
  Receive Date: 20130628
  Receipt Date: 20130628
  Transmission Date: 20140414
  Serious: Yes (Hospitalization)
  Sender: FDA-Public Use
  Company Number: DE-TEVA-416037USA

PATIENT
  Age: 82 Year
  Sex: Female
  Weight: 71 kg

DRUGS (3)
  1. BENDAMUSTINE [Suspect]
     Indication: CHRONIC LYMPHOCYTIC LEUKAEMIA
     Dosage: TID
     Route: 042
     Dates: start: 20130221, end: 20130325
  2. RITUXIMAB [Suspect]
     Indication: NON-HODGKIN^S LYMPHOMA
     Dosage: UNKNOWN/D
     Route: 042
     Dates: start: 20130323
  3. COTRIMOXAZOL [Concomitant]
     Indication: PROPHYLAXIS
     Route: 048
     Dates: start: 20130321, end: 20130413

REACTIONS (6)
  - Dermatitis exfoliative [Recovering/Resolving]
  - Skin exfoliation [Recovering/Resolving]
  - Eosinophil count increased [Recovering/Resolving]
  - Tubulointerstitial nephritis [Recovering/Resolving]
  - Pruritus [Recovering/Resolving]
  - Renal failure acute [Recovering/Resolving]
